FAERS Safety Report 13405159 (Version 1)
Quarter: 2017Q2

REPORT INFORMATION
  Report Type: Report from Study
  Country: US (occurrence: US)
  Receive Date: 20170405
  Receipt Date: 20170405
  Transmission Date: 20170830
  Serious: No
  Sender: FDA-Public Use
  Company Number: US-AMGEN-USASL2017048131

PATIENT
  Age: 32 Year
  Sex: Female

DRUGS (1)
  1. ENBREL [Suspect]
     Active Substance: ETANERCEPT
     Indication: ANKYLOSING SPONDYLITIS
     Dosage: 50 MG, QWK
     Route: 065

REACTIONS (5)
  - Musculoskeletal pain [Recovering/Resolving]
  - Injection site bruising [Recovered/Resolved]
  - Urinary tract infection [Unknown]
  - Migraine [Unknown]
  - Arthralgia [Not Recovered/Not Resolved]
